FAERS Safety Report 23998650 (Version 2)
Quarter: 2024Q4

REPORT INFORMATION
  Report Type: Spontaneous
  Country: FR (occurrence: FR)
  Receive Date: 20240621
  Receipt Date: 20241022
  Transmission Date: 20250115
  Serious: Yes (Hospitalization)
  Sender: ACCORD
  Company Number: None

PATIENT
  Age: 74 Year
  Sex: Female

DRUGS (3)
  1. LETROZOLE [Suspect]
     Active Substance: LETROZOLE
     Indication: Breast cancer
     Dates: start: 20240228
  2. ABEMACICLIB [Suspect]
     Active Substance: ABEMACICLIB
     Indication: Breast cancer
     Dosage: STRENGTH: 150 MG
     Dates: start: 20240228, end: 20240515
  3. LEVOTHYROXINE [Concomitant]
     Active Substance: LEVOTHYROXINE
     Indication: Hypothyroidism
     Dosage: STRENGTH: 100 MCG

REACTIONS (3)
  - Colitis [Recovered/Resolved]
  - Aortic thrombosis [Recovering/Resolving]
  - Peripheral artery thrombosis [Recovering/Resolving]

NARRATIVE: CASE EVENT DATE: 20240314
